FAERS Safety Report 5060676-5 (Version None)
Quarter: 2006Q2

REPORT INFORMATION
  Report Type: 
  Country: None (occurrence: None)
  Receive Date: 20060630
  Receipt Date: 20051128
  Transmission Date: 20061013
  Serious: Yes (Hospitalization, Other)
  Sender: FDA-Public Use
  Company Number: USA020616695

PATIENT
  Age: 52 Year
  Sex: Male
  Weight: 61.2 kg

DRUGS (7)
  1. HUMALOG [Suspect]
     Dates: start: 19950101, end: 20031101
  2. HUMULIN N [Suspect]
     Indication: DIABETES MELLITUS
     Dosage: 30 U, DAILY (1/D), SUBCUTANEOUS
     Route: 058
     Dates: start: 19930101, end: 20031101
  3. HUMULIN R [Suspect]
     Indication: DIABETES MELLITUS
     Dosage: AS NEEDED, SUBCUTANEOUS
     Route: 058
     Dates: start: 19930101, end: 20031101
  4. HUMULIN(HUMAN INSULIN (RDNA ORIGIN) 30%...) [Suspect]
     Indication: DIABETES MELLITUS
     Dosage: SUBCUTANEOUS
     Route: 058
  5. ILETIN [Suspect]
     Indication: DIABETES MELLITUS
     Dosage: SUBCUTANEOUS
     Route: 058
  6. ILETIN [Suspect]
     Indication: DIABETES MELLITUS
     Dosage: 12 U, DAILY (1/D), SUBCUTANEOUS
     Route: 058
     Dates: start: 20031101
  7. ILETIN [Suspect]
     Indication: DIABETES MELLITUS
     Dosage: 32 U, DAILY (1/D)
     Dates: start: 20031101

REACTIONS (4)
  - BLOOD GLUCOSE DECREASED [None]
  - BLOOD GLUCOSE INCREASED [None]
  - HYPOGLYCAEMIA UNAWARENESS [None]
  - LOSS OF CONSCIOUSNESS [None]
